FAERS Safety Report 6480545-3 (Version None)
Quarter: 2009Q4

REPORT INFORMATION
  Report Type: 
  Country: None (occurrence: None)
  Receive Date: 20091208
  Receipt Date: 20091105
  Transmission Date: 20100525
  Serious: Yes (Other)
  Sender: FDA-Public Use
  Company Number: MX-NOVOPROD-292475

PATIENT
  Age: 5 Year
  Sex: Male

DRUGS (2)
  1. NORDITROPIN NORDIFLEX [Suspect]
     Indication: GROWTH HORMONE DEFICIENCY
  2. OMEPRAZOLE [Concomitant]

REACTIONS (2)
  - LIMB IMMOBILISATION [None]
  - MUSCLE SPASMS [None]
